FAERS Safety Report 8842092 (Version 8)
Quarter: 2014Q3

REPORT INFORMATION
  Report Type: Spontaneous
  Country: US (occurrence: US)
  Receive Date: 20121016
  Receipt Date: 20140822
  Transmission Date: 20150326
  Serious: Yes (Hospitalization, Other)
  Sender: FDA-Public Use
  Company Number: US-009507513-1210USA005838

PATIENT
  Sex: Female
  Weight: 61.22 kg

DRUGS (4)
  1. GARDASIL [Concomitant]
     Active Substance: HUMAN PAPILLOMAVIRUS QUADRIVALENT (TYPES 6, 11, 16, AND 18) VACCINE, RECOMBINANT
     Indication: PROPHYLAXIS
     Dosage: .5 ML
     Route: 030
     Dates: start: 20100802, end: 20100802
  2. ZOLOFT [Concomitant]
     Active Substance: SERTRALINE HYDROCHLORIDE
     Indication: DEPRESSION
     Dosage: UNK
     Route: 048
  3. ZOLOFT [Concomitant]
     Active Substance: SERTRALINE HYDROCHLORIDE
     Indication: ANXIETY
  4. NUVARING [Suspect]
     Active Substance: ETHINYL ESTRADIOL\ETONOGESTREL
     Indication: CONTRACEPTION
     Dosage: UNK
     Route: 067
     Dates: start: 20100601

REACTIONS (13)
  - Deep vein thrombosis [Unknown]
  - Headache [Unknown]
  - Pineal gland cyst [Unknown]
  - Atrial septal defect repair [Unknown]
  - Coagulopathy [Unknown]
  - Wisdom teeth removal [Unknown]
  - Pain in extremity [Unknown]
  - Cerebrovascular accident [Unknown]
  - Sleep disorder [Unknown]
  - Sebaceous cyst excision [Unknown]
  - Fall [Unknown]
  - Varicose vein [Unknown]
  - Discomfort [Unknown]

NARRATIVE: CASE EVENT DATE: 201006
